FAERS Safety Report 11937583 (Version 1)
Quarter: 2016Q1

REPORT INFORMATION
  Report Type: Report from Study
  Country: AR (occurrence: AR)
  Receive Date: 20160122
  Receipt Date: 20160122
  Transmission Date: 20160526
  Serious: Yes (Death, Hospitalization)
  Sender: FDA-Public Use
  Company Number: AR-ROCHE-1697747

PATIENT
  Age: 66 Year
  Sex: Female

DRUGS (1)
  1. AVASTIN [Suspect]
     Active Substance: BEVACIZUMAB
     Indication: COLORECTAL CANCER
     Route: 065
     Dates: start: 20150716

REACTIONS (2)
  - Ill-defined disorder [Unknown]
  - Gastric haemorrhage [Fatal]

NARRATIVE: CASE EVENT DATE: 20151231
